FAERS Safety Report 14780817 (Version 2)
Quarter: 2019Q1

REPORT INFORMATION
  Report Type: Not Available
  Country: US (occurrence: US)
  Receive Date: 20180419
  Receipt Date: 20190114
  Transmission Date: 20190417
  Serious: No
  Sender: FDA-Public Use
  Company Number: US-NEUROCRINE BIOSCIENCES INC.-2018NBI00337

PATIENT
  Age: 56 Year
  Sex: Female

DRUGS (1)
  1. INGREZZA [Suspect]
     Active Substance: VALBENAZINE
     Indication: TARDIVE DYSKINESIA
     Route: 048
     Dates: start: 20171218, end: 20181228

REACTIONS (2)
  - Drooling [Unknown]
  - Vomiting [Unknown]

NARRATIVE: CASE EVENT DATE: 20180125
